FAERS Safety Report 11856391 (Version 1)
Quarter: 2015Q4

REPORT INFORMATION
  Report Type: Spontaneous
  Country: US (occurrence: US)
  Receive Date: 20151221
  Receipt Date: 20151221
  Transmission Date: 20160305
  Serious: Yes (Hospitalization)
  Sender: FDA-Public Use
  Company Number: US-SA-2015SA215554

PATIENT
  Age: 45 Year
  Sex: Female

DRUGS (2)
  1. AMBIEN [Suspect]
     Active Substance: ZOLPIDEM TARTRATE
     Route: 065
  2. SOFOSBUVIR [Interacting]
     Active Substance: SOFOSBUVIR
     Route: 048

REACTIONS (2)
  - Drug interaction [Unknown]
  - Insomnia [Unknown]
